FAERS Safety Report 24545849 (Version 5)
Quarter: 2025Q4

REPORT INFORMATION
  Report Type: Report from Study
  Country: EU (occurrence: EU)
  Receive Date: 20241024
  Receipt Date: 20251006
  Transmission Date: 20260117
  Serious: Yes (Hospitalization, Other)
  Sender: CHIESI
  Company Number: EU-AMRYT PHARMACEUTICALS DAC-AEGR007495

PATIENT
  Sex: Male
  Weight: 48 kg

DRUGS (14)
  1. METRELEPTIN [Suspect]
     Active Substance: METRELEPTIN
     Indication: Acquired generalised lipodystrophy
     Dosage: UNK
     Dates: start: 20040101, end: 20050101
  2. METRELEPTIN [Suspect]
     Active Substance: METRELEPTIN
     Dosage: UNK
     Dates: start: 20050101
  3. RAMIPRIL [Concomitant]
     Active Substance: RAMIPRIL
     Indication: Product used for unknown indication
     Dosage: 2.5 MILLIGRAM, QD
  4. INSULIN DEGLUDEC [Concomitant]
     Active Substance: INSULIN DEGLUDEC
     Indication: Product used for unknown indication
     Dosage: UNK UNK, QD
     Dates: start: 20230701
  5. INSULIN LISPRO [Concomitant]
     Active Substance: INSULIN LISPRO
     Indication: Product used for unknown indication
     Dosage: UNK
  6. URSODIOL [Concomitant]
     Active Substance: URSODIOL
     Indication: Product used for unknown indication
     Dosage: 500 MILLIGRAM, QD
     Dates: start: 20160101
  7. USTEKINUMAB [Concomitant]
     Active Substance: USTEKINUMAB
     Indication: Product used for unknown indication
     Dosage: UNK UNK, QD
     Dates: start: 20210901
  8. PANTOPRAZOLE [Concomitant]
     Active Substance: PANTOPRAZOLE
     Indication: Product used for unknown indication
     Dosage: 40 MILLIGRAM, QD
     Dates: start: 20120101
  9. ROXADUSTAT [Concomitant]
     Active Substance: ROXADUSTAT
     Indication: Product used for unknown indication
     Dosage: 50 MILLIGRAM, QD
     Dates: start: 20230201
  10. SODIUM BICARBONATE [Concomitant]
     Active Substance: SODIUM BICARBONATE
     Indication: Product used for unknown indication
     Dosage: UNK
     Dates: start: 20230701
  11. LOPERAMIDE [Concomitant]
     Active Substance: LOPERAMIDE
     Indication: Product used for unknown indication
     Dosage: 2 MILLIGRAM, QD
     Dates: start: 20230701
  12. FERROUS SULFATE [Concomitant]
     Active Substance: FERROUS SULFATE
     Indication: Product used for unknown indication
     Dosage: 1 DOSAGE FORM, QD
     Dates: start: 20231201
  13. TACROLIMUS [Concomitant]
     Active Substance: TACROLIMUS
     Indication: Product used for unknown indication
     Dosage: 2000 MILLIGRAM, QD
     Dates: start: 20120101
  14. SULFAMETHOXAZOLE AND TRIMETHOPRIM [Concomitant]
     Active Substance: SULFAMETHOXAZOLE\TRIMETHOPRIM
     Indication: Product used for unknown indication
     Dosage: 800 MILLIGRAM, QD
     Dates: start: 20230101

REACTIONS (4)
  - Urinary retention [Recovered/Resolved]
  - Haematuria [Recovered/Resolved]
  - Renal failure [Not Recovered/Not Resolved]
  - Splenomegaly [Not Recovered/Not Resolved]

NARRATIVE: CASE EVENT DATE: 20241016
